FAERS Safety Report 9625745 (Version 1)
Quarter: 2013Q4

REPORT INFORMATION
  Report Type: Spontaneous
  Country: US (occurrence: None)
  Receive Date: 20131015
  Receipt Date: 20131015
  Transmission Date: 20140711
  Serious: Yes (Disabling)
  Sender: FDA-Public Use
  Company Number: None

PATIENT
  Age: 37 Month
  Sex: Female
  Weight: 65.77 kg

DRUGS (5)
  1. LEVOFLOXIN [Suspect]
     Indication: NASOPHARYNGITIS
     Route: 048
  2. WOMAN^S CENTRUM MULTIVITAMIN [Concomitant]
  3. PROBIOTICS [Concomitant]
  4. GOTO KOLA DAILY [Concomitant]
  5. IRON [Concomitant]

REACTIONS (16)
  - Screaming [None]
  - Feeling abnormal [None]
  - Dizziness [None]
  - Nausea [None]
  - Headache [None]
  - Tinnitus [None]
  - Hypophagia [None]
  - Abdominal pain upper [None]
  - Dyspnoea [None]
  - Productive cough [None]
  - Hypoaesthesia [None]
  - Blindness [None]
  - Paraesthesia [None]
  - Insomnia [None]
  - Pruritus [None]
  - Balance disorder [None]
